FAERS Safety Report 18063267 (Version 2)
Quarter: 2021Q1

REPORT INFORMATION
  Report Type: Report from Study
  Country: US (occurrence: US)
  Receive Date: 20200723
  Receipt Date: 20210107
  Transmission Date: 20210419
  Serious: Yes (Hospitalization, Other)
  Sender: FDA-Public Use
  Company Number: US-INCYTE CORPORATION-2020IN004318

PATIENT

DRUGS (3)
  1. JAKAFI [Suspect]
     Active Substance: RUXOLITINIB
     Indication: POLYCYTHAEMIA VERA
     Dosage: 10 MILLIGRAM, BID
     Route: 048
     Dates: start: 20180305
  2. BACTRIM [Suspect]
     Active Substance: SULFAMETHOXAZOLE\TRIMETHOPRIM
     Indication: PRODUCT USED FOR UNKNOWN INDICATION
     Route: 065
  3. LASIX [Suspect]
     Active Substance: FUROSEMIDE
     Indication: PRODUCT USED FOR UNKNOWN INDICATION
     Route: 065

REACTIONS (8)
  - Skin lesion [Unknown]
  - Hypercalcaemia [Unknown]
  - General physical health deterioration [Unknown]
  - Cardiac failure congestive [Unknown]
  - Renal failure [Unknown]
  - Squamous cell carcinoma of head and neck [Unknown]
  - Fluid overload [Unknown]
  - Confusional state [Unknown]
